FAERS Safety Report 13694572 (Version 3)
Quarter: 2017Q3

REPORT INFORMATION
  Report Type: Spontaneous
  Country: US (occurrence: US)
  Receive Date: 20170627
  Receipt Date: 20170831
  Transmission Date: 20171127
  Serious: No
  Sender: FDA-Public Use
  Company Number: US-GLAXOSMITHKLINE-US2017097933

PATIENT
  Age: 84 Year
  Sex: Female

DRUGS (1)
  1. MEPRON [Suspect]
     Active Substance: ATOVAQUONE
     Indication: PNEUMOCYSTIS JIROVECII PNEUMONIA
     Dosage: 10 ML, QD
     Route: 048
     Dates: start: 2011

REACTIONS (3)
  - Tongue discomfort [Recovered/Resolved]
  - Product quality issue [Unknown]
  - Tongue erythema [Recovering/Resolving]

NARRATIVE: CASE EVENT DATE: 20170622
